FAERS Safety Report 7877556-X (Version None)
Quarter: 2011Q4

REPORT INFORMATION
  Report Type: 
  Country: None (occurrence: None)
  Receive Date: 20111031
  Receipt Date: 20111025
  Transmission Date: 20120403
  Serious: Yes (Hospitalization, Other)
  Sender: FDA-Public Use
  Company Number: DE-PFIZER INC-2011252806

PATIENT
  Age: 55 Year
  Sex: Female
  Weight: 94 kg

DRUGS (12)
  1. PEGVISOMANT [Suspect]
     Indication: ACROMEGALY
     Dosage: 20 MG, 1X/DAY
     Dates: start: 20080711
  2. TROMCARDIN [Concomitant]
     Indication: HYPERTENSION
     Dosage: UNK
     Dates: start: 20090922
  3. IBUPROFEN [Concomitant]
     Indication: PAIN
     Dosage: UNK
     Dates: start: 20090922
  4. AMLODIPINE [Concomitant]
     Indication: HYPERTENSION
     Dosage: UNK
     Dates: start: 20090922
  5. VALORON ^GOEDECKE^ [Concomitant]
     Indication: PAIN
     Dosage: UNK
     Dates: start: 20090922
  6. LEVOTHYROXINE SODIUM [Concomitant]
     Indication: BLOOD THYROID STIMULATING HORMONE DECREASED
     Dosage: UNK
     Dates: start: 20080711
  7. RAMIPRIL/HYDROCHLOROTHIAZIDE [Concomitant]
     Indication: HYPERTENSION
     Dosage: UNK
     Dates: start: 20080711
  8. AMITRIPTYLINE HCL [Concomitant]
     Indication: DEPRESSION
     Dosage: UNK
     Dates: start: 20090922
  9. PANTOPRAZOLE SODIUM [Concomitant]
     Indication: GASTROOESOPHAGEAL REFLUX PROPHYLAXIS
     Dosage: UNK
     Dates: start: 20090922
  10. BAYOTENSIN AKUT [Concomitant]
     Indication: HYPERTENSION
     Dosage: UNK
     Dates: start: 20080711
  11. CO-DIOVANE [Concomitant]
     Indication: HYPERTENSION
     Dosage: UNK
     Dates: start: 20090922
  12. TRANCOPAL [Concomitant]
     Indication: PAIN
     Dosage: UNK
     Dates: start: 20090922

REACTIONS (2)
  - PULMONARY EMBOLISM [None]
  - TACHYPNOEA [None]
